FAERS Safety Report 18879537 (Version 1)
Quarter: 2021Q1

REPORT INFORMATION
  Report Type: Spontaneous
  Country: FR (occurrence: FR)
  Receive Date: 20210211
  Receipt Date: 20210211
  Transmission Date: 20210420
  Serious: Yes (Life-Threatening)
  Sender: FDA-Public Use
  Company Number: FR-TEVA-2021-FR-1877845

PATIENT
  Age: 67 Year
  Sex: Male
  Weight: 86.2 kg

DRUGS (10)
  1. CORTANCYL 20 MG, COMPRIME [Suspect]
     Active Substance: PREDNISONE
     Indication: IMMUNE THROMBOCYTOPENIA
     Dosage: 5MILLIGRAM
     Route: 048
     Dates: start: 20201217, end: 20210114
  2. TEMERITDUO [Concomitant]
     Active Substance: HYDROCHLOROTHIAZIDE\NEBIVOLOL HYDROCHLORIDE
  3. ALPRAZOLAM. [Concomitant]
     Active Substance: ALPRAZOLAM
  4. UVEDOSE [Concomitant]
     Active Substance: CHOLECALCIFEROL
  5. NPLATE [Suspect]
     Active Substance: ROMIPLOSTIM
     Indication: IMMUNE THROMBOCYTOPENIA
     Dosage: 750MICROGRAM
     Route: 042
     Dates: start: 20201211, end: 20210112
  6. REVOLADE 25 MG, COMPRIME PELLICULE [Suspect]
     Active Substance: ELTROMBOPAG OLAMINE
     Indication: IMMUNE THROMBOCYTOPENIA
     Dosage: 150MILLIGRAM
     Route: 048
     Dates: start: 20201209, end: 20201215
  7. IRBESARTAN. [Concomitant]
     Active Substance: IRBESARTAN
  8. PANTOPRAZOLE [Suspect]
     Active Substance: PANTOPRAZOLE
     Indication: GASTRITIS PROPHYLAXIS
     Dosage: 40MILLIGRAM
     Route: 048
     Dates: start: 20201212, end: 20210112
  9. CONTRAMAL 50 MG, GELULE [Suspect]
     Active Substance: TRAMADOL HYDROCHLORIDE
     Indication: PAIN
     Dosage: 1DOSAGEFORM
     Route: 048
     Dates: start: 20201220, end: 20210112
  10. ALLOPURINOL. [Concomitant]
     Active Substance: ALLOPURINOL

REACTIONS (2)
  - Hemiparesis [Recovering/Resolving]
  - Cerebrovascular accident [Recovering/Resolving]

NARRATIVE: CASE EVENT DATE: 20210112
